FAERS Safety Report 8167342-8 (Version None)
Quarter: 2012Q1

REPORT INFORMATION
  Report Type: 
  Country: None (occurrence: None)
  Receive Date: 20120221
  Receipt Date: 20120207
  Transmission Date: 20120608
  Serious: Yes (Death)
  Sender: FDA-Public Use
  Company Number: 1177535

PATIENT
  Age: 84 Year
  Sex: Female
  Weight: 50.91 kg

DRUGS (5)
  1. RITUXAN [Concomitant]
  2. CYTOXAN [Concomitant]
  3. PREDNISONE TAB [Concomitant]
  4. VINCRISTINE SULFATE [Suspect]
     Indication: LYMPHOMA
     Dosage: 2 MG, EVERY 3 WKS, GIVEN ONCE
     Route: 042
     Dates: start: 20120113, end: 20120113
  5. (ADIRAMYCIN) [Concomitant]

REACTIONS (11)
  - URINARY TRACT INFECTION BACTERIAL [None]
  - BLOOD LACTATE DEHYDROGENASE INCREASED [None]
  - HEART RATE IRREGULAR [None]
  - LYMPHADENOPATHY [None]
  - LEFT VENTRICULAR HYPERTROPHY [None]
  - HEART RATE INCREASED [None]
  - BLOOD URIC ACID INCREASED [None]
  - NEOPLASM PROGRESSION [None]
  - KLEBSIELLA INFECTION [None]
  - HYPERMETABOLISM [None]
  - DIFFUSE LARGE B-CELL LYMPHOMA STAGE II [None]
